FAERS Safety Report 8183808-9 (Version None)
Quarter: 2012Q1

REPORT INFORMATION
  Report Type: 
  Country: None (occurrence: None)
  Receive Date: 20120305
  Receipt Date: 20120222
  Transmission Date: 20120608
  Serious: Yes (Hospitalization)
  Sender: FDA-Public Use
  Company Number: DE-JNJFOC-20120212013

PATIENT
  Age: 85 Year
  Sex: Male

DRUGS (6)
  1. RISPERDAL [Suspect]
     Indication: PRODUCT USED FOR UNKNOWN INDICATION
     Route: 048
     Dates: start: 20111011, end: 20111023
  2. MELPERON [Suspect]
     Route: 048
     Dates: start: 20111011
  3. RISPERDAL [Suspect]
     Route: 048
     Dates: start: 20110501, end: 20110801
  4. RISPERDAL [Suspect]
     Route: 048
     Dates: start: 20110801, end: 20111010
  5. RISPERDAL [Suspect]
     Route: 048
     Dates: start: 20111024
  6. MELPERON [Suspect]
     Indication: PRODUCT USED FOR UNKNOWN INDICATION
     Route: 048
     Dates: start: 20110801, end: 20111010

REACTIONS (5)
  - RETINAL HAEMORRHAGE [None]
  - OCULAR HYPERAEMIA [None]
  - FALL [None]
  - EYE PENETRATION [None]
  - VITREOUS HAEMORRHAGE [None]
